FAERS Safety Report 5846253-4 (Version None)
Quarter: 2008Q3

REPORT INFORMATION
  Report Type: 
  Country: None (occurrence: None)
  Receive Date: 20080813
  Receipt Date: 20080805
  Transmission Date: 20090109
  Serious: Yes (Other)
  Sender: FDA-Public Use
  Company Number: 2008SP015964

PATIENT
  Age: 70 Year
  Sex: Female

DRUGS (1)
  1. DESLORATADINE [Suspect]
     Indication: URTICARIA
     Dosage: 20 MG; QD; PO
     Route: 048

REACTIONS (1)
  - HALLUCINATION, VISUAL [None]
